FAERS Safety Report 5915966-8 (Version None)
Quarter: 2008Q4

REPORT INFORMATION
  Report Type: 
  Country: None (occurrence: None)
  Receive Date: 20081013
  Receipt Date: 20081003
  Transmission Date: 20090506
  Serious: Yes (Other)
  Sender: FDA-Public Use
  Company Number: US-BAYER-200810603NA

PATIENT
  Age: 49 Year
  Sex: Female
  Weight: 65 kg

DRUGS (13)
  1. BETASERON [Suspect]
     Indication: SECONDARY PROGRESSIVE MULTIPLE SCLEROSIS
     Route: 058
     Dates: start: 19940101
  2. BETASERON [Suspect]
     Route: 058
     Dates: end: 20070801
  3. BETASERON [Suspect]
     Dosage: TOTAL DAILY DOSE: 8 MIU
     Route: 058
     Dates: start: 20080501
  4. TYSABRI [Concomitant]
     Dates: start: 20070101, end: 20080401
  5. SYNTHROID [Concomitant]
     Dosage: TOTAL DAILY DOSE: 0.125 MG
     Route: 048
  6. LOTREL [Concomitant]
     Route: 048
  7. HIPREX [Concomitant]
  8. FOLIC ACID [Concomitant]
  9. PROVIGIL [Concomitant]
  10. VITAMIN D [Concomitant]
  11. BONIVA [Concomitant]
  12. CARBATROL [Concomitant]
  13. CADUET [Concomitant]

REACTIONS (1)
  - THYROID CANCER [None]
